FAERS Safety Report 16410248 (Version 1)
Quarter: 2019Q2

REPORT INFORMATION
  Report Type: Report from Study
  Country: NL (occurrence: NL)
  Receive Date: 20190610
  Receipt Date: 20190610
  Transmission Date: 20190711
  Serious: Yes (Hospitalization)
  Sender: FDA-Public Use
  Company Number: NL-MYLANLABS-2019M1053525

PATIENT

DRUGS (5)
  1. FLUOROURACIL. [Suspect]
     Active Substance: FLUOROURACIL
     Indication: COLORECTAL CANCER
     Dosage: THE MOST RECENT DOSE OF 5-FLUOROURACIL PRIRO TO SAE: 10/OCT/2018
     Route: 065
     Dates: start: 20180829
  2. LEUCOVORIN                         /00566701/ [Suspect]
     Active Substance: LEUCOVORIN
     Indication: COLORECTAL CANCER
     Dosage: THE MOST RECENTY DOSE OF LEUCOVORIN PRIOR TO SAE:10/OCT/2018
     Route: 065
     Dates: start: 20180829
  3. IRINOTECAN [Suspect]
     Active Substance: IRINOTECAN
     Indication: COLORECTAL CANCER
     Dosage: THE MOST RECENTY DOSE OF IRINOTECAN PRIOR TO SAE: 10/OCT/2018
     Route: 065
     Dates: start: 20180829
  4. OXALIPLATIN. [Suspect]
     Active Substance: OXALIPLATIN
     Indication: COLORECTAL CANCER
     Dosage: THE MOST RECENT DOSE OF OXALIPLATIN PRIOR TO SAE: 10/OCT/2018
     Route: 065
     Dates: start: 20180829
  5. BEVACIZUMAB. [Suspect]
     Active Substance: BEVACIZUMAB
     Indication: COLORECTAL CANCER
     Dosage: THE MOST RECENTY DOSE OF BEVACIZUMAB PRIOR TO SAE: 10/OCT/2018
     Route: 065
     Dates: start: 20180829

REACTIONS (1)
  - Large intestine perforation [Recovered/Resolved]

NARRATIVE: CASE EVENT DATE: 20181013
